FAERS Safety Report 7679208-8 (Version None)
Quarter: 2011Q3

REPORT INFORMATION
  Report Type: 
  Country: None (occurrence: None)
  Receive Date: 20110812
  Receipt Date: 20110802
  Transmission Date: 20111222
  Serious: Yes (Hospitalization)
  Sender: FDA-Public Use
  Company Number: US-JNJFOC-20110802123

PATIENT
  Sex: Male
  Weight: 124.74 kg

DRUGS (4)
  1. INVEGA [Suspect]
     Indication: SCHIZOPHRENIA
     Route: 048
     Dates: start: 20050101, end: 20110301
  2. INVEGA [Suspect]
     Indication: TOURETTE'S DISORDER
     Route: 048
     Dates: start: 20110701
  3. INVEGA [Suspect]
     Route: 048
     Dates: start: 20110701
  4. INVEGA [Suspect]
     Route: 048
     Dates: start: 20050101, end: 20110301

REACTIONS (10)
  - GASTROOESOPHAGEAL REFLUX DISEASE [None]
  - VOMITING [None]
  - TACHYPHRENIA [None]
  - MOOD SWINGS [None]
  - MUSCLE TWITCHING [None]
  - FEELING ABNORMAL [None]
  - GASTRIC DISORDER [None]
  - NEPHROLITHIASIS [None]
  - NAUSEA [None]
  - THERAPY CESSATION [None]
